FAERS Safety Report 6010765-3 (Version None)
Quarter: 2008Q4

REPORT INFORMATION
  Report Type: 
  Country: None (occurrence: None)
  Receive Date: 20081218
  Receipt Date: 20081211
  Transmission Date: 20090506
  Serious: Yes (Other)
  Sender: FDA-Public Use
  Company Number: US-BAYER-200813857BCC

PATIENT
  Age: 74 Year
  Sex: Male
  Weight: 76 kg

DRUGS (8)
  1. ASPIRIN [Suspect]
     Indication: VASCULAR GRAFT
     Dosage: TOTAL DAILY DOSE: 81 MG  UNIT DOSE: 81 MG
     Dates: start: 19960101
  2. PLAVIX [Suspect]
     Indication: STENT PLACEMENT
     Dosage: TOTAL DAILY DOSE: 75 MG  UNIT DOSE: 75 MG
     Route: 048
     Dates: start: 20080201, end: 20081001
  3. ALPRAZOLAM [Concomitant]
     Dosage: TOTAL DAILY DOSE: 0.75 MG  UNIT DOSE: 0.75 MG
     Dates: start: 20050101
  4. SIMVASTATIN [Concomitant]
     Dosage: TOTAL DAILY DOSE: 40 MG  UNIT DOSE: 40 MG
     Dates: start: 19840101
  5. METFORMIN HCL [Concomitant]
     Dosage: TOTAL DAILY DOSE: 1000 MG  UNIT DOSE: 1000 MG
     Dates: start: 19840101
  6. GLYBURIDE [Concomitant]
     Dosage: TOTAL DAILY DOSE: 2.5 MG  UNIT DOSE: 2.5 MG
     Dates: start: 19900101
  7. CARVEDILOL [Concomitant]
     Dosage: TOTAL DAILY DOSE: 3.125 MG  UNIT DOSE: 3.125 MG
     Dates: start: 20080101
  8. NIACIN [Concomitant]
     Dosage: TOTAL DAILY DOSE: 500 MG  UNIT DOSE: 500 MG
     Dates: start: 20010101

REACTIONS (1)
  - EYE HAEMORRHAGE [None]
